FAERS Safety Report 24307143 (Version 1)
Quarter: 2024Q3

REPORT INFORMATION
  Report Type: Spontaneous
  Country: US (occurrence: US)
  Receive Date: 20240911
  Receipt Date: 20240911
  Transmission Date: 20241017
  Serious: No
  Sender: NOBELPHARMA
  Company Number: US-Nobelpharma America, LLC-NPA-2024-01504

PATIENT
  Age: 29 Year
  Sex: Female

DRUGS (2)
  1. HYFTOR [Suspect]
     Active Substance: SIROLIMUS
     Indication: Tuberous sclerosis complex
     Route: 003
     Dates: start: 20230914
  2. HYFTOR [Suspect]
     Active Substance: SIROLIMUS
     Route: 003

REACTIONS (2)
  - Dry skin [Unknown]
  - Sensitive skin [Unknown]

NARRATIVE: CASE EVENT DATE: 20230901
